FAERS Safety Report 17737099 (Version 1)
Quarter: 2020Q2

REPORT INFORMATION
  Report Type: Spontaneous
  Country: FR (occurrence: FR)
  Receive Date: 20200502
  Receipt Date: 20200502
  Transmission Date: 20200714
  Serious: Yes (Hospitalization)
  Sender: FDA-Public Use
  Company Number: FR-TEVA-2020-FR-1229134

PATIENT
  Age: 62 Year
  Sex: Female

DRUGS (6)
  1. THERALENE [Suspect]
     Active Substance: TRIMEPRAZINE
     Dosage: 50 GTT
     Route: 048
     Dates: start: 202002
  2. SERTRALINE (CHLORHYDRATE DE) [Suspect]
     Active Substance: SERTRALINE HYDROCHLORIDE
     Dosage: 150 MILLIGRAM DAILY; THE EVENING
     Route: 048
     Dates: start: 202002
  3. LEVOTHYROX 50 MICROGRAMMES, COMPRIME SECABLE [Concomitant]
     Active Substance: LEVOTHYROXINE SODIUM
     Dosage: 1 DOSAGE FORMS
     Route: 048
  4. TERALITHE [Concomitant]
     Active Substance: LITHIUM CARBONATE
     Dosage: 1 DOSAGE FORMS
     Route: 048
  5. PREGABALINE [Suspect]
     Active Substance: PREGABALIN
     Dosage: 400 MG
     Route: 048
     Dates: start: 202002
  6. MIRTAZAPINE. [Suspect]
     Active Substance: MIRTAZAPINE
     Dosage: 15 MG/KG
     Route: 048
     Dates: start: 202002

REACTIONS (2)
  - Dysarthria [Recovering/Resolving]
  - Cerebellar syndrome [Recovering/Resolving]

NARRATIVE: CASE EVENT DATE: 20200306
